FAERS Safety Report 5111004-8 (Version None)
Quarter: 2006Q3

REPORT INFORMATION
  Report Type: 
  Country: None (occurrence: None)
  Receive Date: 20060920
  Receipt Date: 20060920
  Transmission Date: 20061208
  Serious: Yes (Other)
  Sender: FDA-Public Use
  Company Number: None

PATIENT
  Sex: Female

DRUGS (2)
  1. OXYCODONE- EXTENDED RELEASE 40 OR 80 MG [Suspect]
     Indication: ABDOMINAL ADHESIONS
     Dosage: Q 8H (ORAL)
     Route: 048
  2. OXYCODONE- EXTENDED RELEASE 40 OR 80 MG [Suspect]
     Indication: PAIN
     Dosage: Q 8H (ORAL)
     Route: 048

REACTIONS (3)
  - NAUSEA [None]
  - PHARMACEUTICAL PRODUCT COMPLAINT [None]
  - VOMITING [None]
